FAERS Safety Report 10613665 (Version 1)
Quarter: 2014Q4

REPORT INFORMATION
  Report Type: Spontaneous
  Country: PH (occurrence: PH)
  Receive Date: 20141128
  Receipt Date: 20141128
  Transmission Date: 20150529
  Serious: Yes (Hospitalization, Other)
  Sender: FDA-Public Use
  Company Number: PH-MERCK-1411PHL012157

PATIENT
  Age: 59 Year
  Sex: Female

DRUGS (3)
  1. JANUVIA [Suspect]
     Active Substance: SITAGLIPTIN PHOSPHATE
     Indication: DIABETES MELLITUS
     Dosage: 100 MG, ONE TABLET ONCE A DAY
     Route: 048
     Dates: start: 2011, end: 2014
  2. INSULIN [Concomitant]
     Active Substance: INSULIN NOS
     Dosage: REGULARLY
     Dates: end: 2014
  3. INSULIN [Concomitant]
     Active Substance: INSULIN NOS
     Dosage: INCREASED UNITS
     Dates: start: 2014

REACTIONS (4)
  - Embolism arterial [Unknown]
  - Diabetic complication [Unknown]
  - Myocardial infarction [Unknown]
  - Chest pain [Unknown]

NARRATIVE: CASE EVENT DATE: 201409
